FAERS Safety Report 5613942-6 (Version None)
Quarter: 2008Q1

REPORT INFORMATION
  Report Type: 
  Country: None (occurrence: None)
  Receive Date: 20080205
  Receipt Date: 20080128
  Transmission Date: 20080703
  Serious: Yes (Other)
  Sender: FDA-Public Use
  Company Number: FR-JNJFOC-20080107271

PATIENT
  Age: 37 Year
  Sex: Male

DRUGS (1)
  1. REMICADE [Suspect]
     Indication: ANKYLOSING SPONDYLITIS
     Dosage: 3 INFUSIONS ON UNSPECIFIED DATES.
     Route: 042

REACTIONS (3)
  - ALOPECIA AREATA [None]
  - MELANOCYTIC NAEVUS [None]
  - NAIL DISORDER [None]
